FAERS Safety Report 4347087-2 (Version None)
Quarter: 2004Q2

REPORT INFORMATION
  Report Type: 
  Country: None (occurrence: None)
  Receive Date: 20040426
  Receipt Date: 20040422
  Transmission Date: 20050107
  Serious: Yes (Hospitalization)
  Sender: FDA-Public Use
  Company Number: FR-GLAXOSMITHKLINE-B0330659A

PATIENT
  Sex: Male

DRUGS (8)
  1. AUGMENTIN [Suspect]
     Dosage: 3G PER DAY
     Route: 042
     Dates: start: 20040221, end: 20040224
  2. CIPROFLOXACIN [Concomitant]
     Dosage: 400MG PER DAY
     Route: 042
     Dates: start: 20040221
  3. PERFALGAN [Concomitant]
     Dosage: 4G PER DAY
     Route: 042
     Dates: start: 20040221
  4. LASIX [Concomitant]
     Dosage: 40MG PER DAY
     Route: 042
     Dates: start: 20040221
  5. SOLU-MEDROL [Concomitant]
     Dosage: 120MG PER DAY
     Route: 042
     Dates: start: 20040221
  6. DEPAKENE [Concomitant]
     Route: 065
  7. CALCIPARINE [Concomitant]
     Route: 058
     Dates: start: 20040221, end: 20040224
  8. DIGOXIN [Concomitant]
     Route: 048

REACTIONS (3)
  - COMA [None]
  - DIABETIC HYPEROSMOLAR COMA [None]
  - RASH MORBILLIFORM [None]
